FAERS Safety Report 6036342-6 (Version None)
Quarter: 2009Q1

REPORT INFORMATION
  Report Type: 
  Country: None (occurrence: None)
  Receive Date: 20090113
  Receipt Date: 20090109
  Transmission Date: 20090719
  Serious: Yes (Hospitalization)
  Sender: FDA-Public Use
  Company Number: US-GILEAD-2009-0019739

PATIENT
  Sex: Female
  Weight: 79.45 kg

DRUGS (8)
  1. LETAIRIS [Suspect]
     Indication: PULMONARY ARTERIAL HYPERTENSION
     Route: 048
     Dates: start: 20080520
  2. CORGARD [Concomitant]
  3. LIPITOR [Concomitant]
  4. ADVAIR DISKUS 250/50 [Concomitant]
  5. SPIRIVA [Concomitant]
  6. PROAIR HFA [Concomitant]
  7. PREDNISONE TAB [Concomitant]
  8. PLAQUENIL [Concomitant]

REACTIONS (3)
  - ASTHMA [None]
  - CHRONIC OBSTRUCTIVE PULMONARY DISEASE [None]
  - COR PULMONALE [None]
